FAERS Safety Report 16287913 (Version 1)
Quarter: 2019Q2

REPORT INFORMATION
  Report Type: Spontaneous
  Country: US (occurrence: US)
  Receive Date: 20190508
  Receipt Date: 20190508
  Transmission Date: 20190711
  Serious: Yes (Hospitalization)
  Sender: FDA-Public Use
  Company Number: US-ASTRAZENECA-2019SE66618

PATIENT
  Age: 41 Year
  Sex: Male
  Weight: 102.1 kg

DRUGS (7)
  1. NICOTINE POLACRILEX [Concomitant]
     Active Substance: NICOTINE
  2. WELLBUTRIN [Suspect]
     Active Substance: BUPROPION HYDROCHLORIDE
     Route: 065
  3. CLONIDINE. [Concomitant]
     Active Substance: CLONIDINE
  4. SEROQUEL [Suspect]
     Active Substance: QUETIAPINE FUMARATE
     Route: 048
  5. TEMGESIC-NX [Concomitant]
  6. HYDROXYZINE [Suspect]
     Active Substance: HYDROXYZINE HYDROCHLORIDE
     Route: 065
  7. BUPROPION. [Concomitant]
     Active Substance: BUPROPION

REACTIONS (1)
  - Rhabdomyolysis [Unknown]

NARRATIVE: CASE EVENT DATE: 20181227
